FAERS Safety Report 6007854-6 (Version None)
Quarter: 2008Q4

REPORT INFORMATION
  Report Type: 
  Country: None (occurrence: None)
  Receive Date: 20081217
  Receipt Date: 20080703
  Transmission Date: 20090506
  Serious: No
  Sender: FDA-Public Use
  Company Number: US-ASTRAZENECA-2008UW13386

PATIENT
  Age: 62 Year
  Sex: Female
  Weight: 123.4 kg

DRUGS (14)
  1. CRESTOR [Suspect]
     Indication: BLOOD CHOLESTEROL INCREASED
     Route: 048
     Dates: start: 20080601
  2. ASPIRIN [Concomitant]
  3. ATENOLOL [Concomitant]
  4. INSULIN [Concomitant]
  5. ZETIA [Concomitant]
  6. GLIPAZIDE ER [Concomitant]
  7. LEVUTHYROXINE [Concomitant]
  8. COZAAR [Concomitant]
  9. METFORMIN HCL [Concomitant]
  10. ASMANEX TWISTHALER [Concomitant]
  11. ALEVE [Concomitant]
  12. NITROGLYCERIN [Concomitant]
  13. OMEPRAZOLE [Concomitant]
  14. FEXOFENADINE [Concomitant]

REACTIONS (1)
  - PARAESTHESIA [None]
